FAERS Safety Report 5323146-2 (Version None)
Quarter: 2007Q2

REPORT INFORMATION
  Report Type: 
  Country: None (occurrence: None)
  Receive Date: 20070220
  Receipt Date: 20061120
  Transmission Date: 20071010
  Serious: No
  Sender: FDA-Public Use
  Company Number: WAES 0611USA05843

PATIENT
  Age: 56 Year
  Sex: Female

DRUGS (8)
  1. JANUVIA [Suspect]
     Indication: DIABETES MELLITUS
     Dosage: 100 MG/DAILY/PO
     Route: 048
     Dates: start: 20061108
  2. ACTONEL [Concomitant]
  3. ALLEGRA [Concomitant]
  4. COZAAR [Concomitant]
  5. NASONEX [Concomitant]
  6. TRICOR [Concomitant]
  7. ZETIA [Concomitant]
  8. METFORMIN HCL [Concomitant]

REACTIONS (2)
  - APPETITE DISORDER [None]
  - GASTRIC DISORDER [None]
